FAERS Safety Report 8087620-0 (Version None)
Quarter: 2012Q1

REPORT INFORMATION
  Report Type: 
  Country: None (occurrence: None)
  Receive Date: 20120128
  Receipt Date: 20110525
  Transmission Date: 20120608
  Serious: No
  Sender: FDA-Public Use
  Company Number: US-ABBOTT-11P-163-0728605-00

PATIENT
  Age: 26 Year
  Sex: Female

DRUGS (6)
  1. HUMIRA [Suspect]
     Indication: CROHN'S DISEASE
     Dates: start: 20070101, end: 20090101
  2. LIALDA [Concomitant]
     Indication: PRODUCT USED FOR UNKNOWN INDICATION
     Dosage: 2 PILLS DAILY FOR 2 YEARS
  3. HUMIRA [Suspect]
     Dates: start: 20110503
  4. BENADRYL [Concomitant]
     Indication: RHINORRHOEA
     Dates: start: 20110501
  5. PREDNISONE TAB [Concomitant]
     Indication: PRODUCT USED FOR UNKNOWN INDICATION
     Dosage: IN THE MORNING AND AT BEDTIME FOR 1 MONTH
  6. HYDROCORT ENEMAS [Concomitant]
     Indication: PRODUCT USED FOR UNKNOWN INDICATION
     Dosage: AT BEDTIME
     Dates: start: 20110401

REACTIONS (4)
  - LARYNGITIS [None]
  - RHINORRHOEA [None]
  - PNEUMONIA [None]
  - LYMPHADENOPATHY [None]
